FAERS Safety Report 7722244-3 (Version None)
Quarter: 2011Q3

REPORT INFORMATION
  Report Type: 
  Country: None (occurrence: None)
  Receive Date: 20110831
  Receipt Date: 20110821
  Transmission Date: 20111222
  Serious: Yes (Hospitalization)
  Sender: FDA-Public Use
  Company Number: US-CELGENEUS-163-50794-11082541

PATIENT
  Sex: Male
  Weight: 63.56 kg

DRUGS (9)
  1. ASPIRIN [Concomitant]
     Route: 065
  2. LASIX [Concomitant]
     Route: 065
  3. VIDAZA [Suspect]
     Route: 065
     Dates: start: 20110808, end: 20110809
  4. COREG [Concomitant]
     Route: 065
  5. LIPITOR [Concomitant]
     Route: 065
  6. VIDAZA [Suspect]
     Route: 065
     Dates: start: 20110815
  7. PLAVIX [Concomitant]
     Route: 065
  8. AMLODIPINE [Concomitant]
     Route: 065
  9. AGRYLIN [Concomitant]
     Route: 065

REACTIONS (2)
  - OXYGEN SATURATION DECREASED [None]
  - FLUID RETENTION [None]
